FAERS Safety Report 10932131 (Version 1)
Quarter: 2015Q1

REPORT INFORMATION
  Report Type: Spontaneous
  Country: US (occurrence: None)
  Receive Date: 20150212
  Receipt Date: 20150212
  Transmission Date: 20150721
  Serious: Yes (Hospitalization)
  Sender: FDA-Public Use
  Company Number: TPA2011A02409

PATIENT
  Age: 60 Year
  Sex: Male

DRUGS (4)
  1. COLCHICINE (COLCHICINE) [Suspect]
     Active Substance: COLCHICINE
  2. ASIAN HERB THERAPY (HERBAL PREPARATION) [Concomitant]
  3. ULORIC [Suspect]
     Active Substance: FEBUXOSTAT
     Indication: GOUT
     Route: 048
  4. INDOMETHACIN (INDOMETHACIN) [Suspect]
     Active Substance: INDOMETHACIN
     Indication: GOUT

REACTIONS (4)
  - Pyrexia [None]
  - Gouty tophus [None]
  - Acute kidney injury [None]
  - White blood cell count increased [None]
